FAERS Safety Report 8218024-5 (Version None)
Quarter: 2012Q1

REPORT INFORMATION
  Report Type: 
  Country: None (occurrence: None)
  Receive Date: 20120319
  Receipt Date: 20120312
  Transmission Date: 20120608
  Serious: Yes (Hospitalization)
  Sender: FDA-Public Use
  Company Number: FR-PFIZER INC-2012048055

PATIENT
  Age: 66 Year
  Sex: Female

DRUGS (6)
  1. RITUXIMAB [Suspect]
     Indication: MANTLE CELL LYMPHOMA RECURRENT
     Dosage: UNK
     Dates: start: 20120126, end: 20120130
  2. VINCRISTINE SULFATE [Suspect]
     Indication: MANTLE CELL LYMPHOMA RECURRENT
     Dosage: UNK
     Dates: start: 20120126, end: 20120130
  3. CYCLOPHOSPHAMIDE [Suspect]
     Indication: MANTLE CELL LYMPHOMA RECURRENT
     Dosage: UNK
     Dates: start: 20120126, end: 20120130
  4. PREDNISOLONE [Suspect]
     Indication: MANTLE CELL LYMPHOMA RECURRENT
     Dosage: UNK
     Dates: start: 20120126, end: 20120130
  5. DOXORUBICIN HCL [Suspect]
     Indication: MANTLE CELL LYMPHOMA RECURRENT
     Dosage: UNK
     Dates: start: 20120126, end: 20120130
  6. TORISEL [Suspect]
     Indication: MANTLE CELL LYMPHOMA RECURRENT
     Dosage: 25 MG, UNK
     Dates: start: 20120127, end: 20120202

REACTIONS (1)
  - GASTROINTESTINAL HAEMORRHAGE [None]
